FAERS Safety Report 6416024-9 (Version None)
Quarter: 2009Q4

REPORT INFORMATION
  Report Type: 
  Country: None (occurrence: None)
  Receive Date: 20091027
  Receipt Date: 20091019
  Transmission Date: 20100525
  Serious: Yes (Other)
  Sender: FDA-Public Use
  Company Number: US-AVENTIS-200919410US

PATIENT
  Sex: Male

DRUGS (3)
  1. LOVENOX [Suspect]
     Dosage: DOSE: UNK
  2. HEPARIN [Suspect]
     Dosage: DOSE: UNK
  3. ARIXTRA [Suspect]
     Dosage: DOSE: UNK

REACTIONS (1)
  - ANGIOEDEMA [None]
